FAERS Safety Report 14616930 (Version 1)
Quarter: 2018Q1

REPORT INFORMATION
  Report Type: Spontaneous
  Country: US (occurrence: US)
  Receive Date: 20180309
  Receipt Date: 20180309
  Transmission Date: 20180509
  Serious: No
  Sender: FDA-Public Use
  Company Number: US-BRISTOL-MYERS SQUIBB COMPANY-BMS-2018-021539

PATIENT
  Sex: Female

DRUGS (2)
  1. ELIQUIS [Suspect]
     Active Substance: APIXABAN
     Indication: VEIN COLLAPSE
     Dosage: 5 MG, BID
     Route: 048
     Dates: start: 20180222, end: 20180306
  2. ELIQUIS [Suspect]
     Active Substance: APIXABAN
     Indication: STENT PLACEMENT
     Route: 065

REACTIONS (5)
  - Rash [Recovered/Resolved]
  - Furuncle [Unknown]
  - Rash pruritic [Recovered/Resolved]
  - Blood viscosity increased [Unknown]
  - Product use in unapproved indication [Unknown]

NARRATIVE: CASE EVENT DATE: 2018
